APPROVED DRUG PRODUCT: AZASAN
Active Ingredient: AZATHIOPRINE
Strength: 50MG
Dosage Form/Route: TABLET;ORAL
Application: A075252 | Product #001 | TE Code: AB
Applicant: AAIPHARMA LLC
Approved: Jun 7, 1999 | RLD: No | RS: No | Type: RX